FAERS Safety Report 15839119 (Version 3)
Quarter: 2023Q4

REPORT INFORMATION
  Report Type: Report from Study
  Country: FR (occurrence: FR)
  Receive Date: 20190117
  Receipt Date: 20231026
  Transmission Date: 20240110
  Serious: Yes (Death, Hospitalization, Other)
  Sender: FDA-Public Use
  Company Number: FR-JAZZ-2019-FR-000633

PATIENT
  Age: 64 Year
  Sex: Male
  Weight: 77 kg

DRUGS (11)
  1. DEFITELIO [Suspect]
     Active Substance: DEFIBROTIDE SODIUM
     Indication: Prophylaxis
     Dosage: 25 MG/KG, QD
     Route: 042
     Dates: start: 20151031, end: 20151129
  2. MIDAZOLAM [Concomitant]
     Active Substance: MIDAZOLAM
     Indication: Abdominal pain
     Dosage: 50 MILLIGRAM
     Route: 042
     Dates: start: 20160218, end: 20160219
  3. URSODIOL [Concomitant]
     Active Substance: URSODIOL
     Indication: Prophylaxis
  4. THIOTEPA [Concomitant]
     Active Substance: THIOTEPA
     Indication: Bone marrow conditioning regimen
     Dosage: 385 MG
  5. ETOPOPHOS [Concomitant]
     Active Substance: ETOPOSIDE PHOSPHATE
     Indication: Bone marrow conditioning regimen
     Dosage: 555 MG
  6. CYCLOPHOSPHAMIDE [Concomitant]
     Active Substance: CYCLOPHOSPHAMIDE
     Indication: Bone marrow conditioning regimen
     Dosage: 2250 MG
  7. FLUDARABINE [Concomitant]
     Active Substance: FLUDARABINE PHOSPHATE
     Indication: Bone marrow conditioning regimen
     Dosage: 275 MG
  8. BUSULFAN [Concomitant]
     Active Substance: BUSULFAN
     Indication: Bone marrow conditioning regimen
     Dosage: 480 MG
  9. CYCLOSPORINE [Concomitant]
     Active Substance: CYCLOSPORINE
     Indication: Prophylaxis against graft versus host disease
  10. TACROLIMUS [Concomitant]
     Active Substance: TACROLIMUS
     Indication: Prophylaxis against graft versus host disease
  11. MYCOPHENOLATE MOFETIL [Concomitant]
     Active Substance: MYCOPHENOLATE MOFETIL
     Indication: Prophylaxis against graft versus host disease

REACTIONS (3)
  - Multiple organ dysfunction syndrome [Fatal]
  - Graft versus host disease [Unknown]
  - Off label use [Unknown]

NARRATIVE: CASE EVENT DATE: 20151031
